FAERS Safety Report 20573080 (Version 1)
Quarter: 2022Q1

REPORT INFORMATION
  Report Type: Spontaneous
  Country: US (occurrence: US)
  Receive Date: 20220309
  Receipt Date: 20220309
  Transmission Date: 20220423
  Serious: Yes (Other)
  Sender: FDA-Public Use
  Company Number: US-PFIZER INC-202200351222

PATIENT
  Age: 22 Year
  Weight: 110.22 kg

DRUGS (3)
  1. DEPO-PROVERA [Suspect]
     Active Substance: MEDROXYPROGESTERONE ACETATE
     Indication: Contraception
     Dosage: UNK
     Dates: start: 2016, end: 2018
  2. DEPO-PROVERA [Suspect]
     Active Substance: MEDROXYPROGESTERONE ACETATE
     Dosage: UNK
     Dates: end: 2020
  3. DEPO-PROVERA [Suspect]
     Active Substance: MEDROXYPROGESTERONE ACETATE
     Dosage: UNK
     Dates: start: 2021, end: 2021

REACTIONS (13)
  - Haemorrhage [Unknown]
  - Diabetes mellitus [Unknown]
  - Infertility [Unknown]
  - Polycystic ovaries [Unknown]
  - Blood glucose abnormal [Unknown]
  - Hormone level abnormal [Unknown]
  - Injury [Unknown]
  - Glucose tolerance impaired [Unknown]
  - Abnormal weight gain [Unknown]
  - Weight loss poor [Unknown]
  - Mental disorder [Unknown]
  - Alopecia [Unknown]
  - Blood testosterone increased [Unknown]
